FAERS Safety Report 23515507 (Version 1)
Quarter: 2024Q1

REPORT INFORMATION
  Report Type: Spontaneous
  Country: CA (occurrence: CA)
  Receive Date: 20240213
  Receipt Date: 20240213
  Transmission Date: 20240409
  Serious: Yes (Other)
  Sender: FDA-Public Use
  Company Number: CA-BoehringerIngelheim-2024-BI-006926

PATIENT
  Age: 75 Year
  Sex: Female

DRUGS (2)
  1. AFATINIB [Suspect]
     Active Substance: AFATINIB
     Indication: Non-small cell lung cancer metastatic
     Dosage: 20-30MG/DAY, DAILY, 32 CYCLES
     Dates: start: 20180314, end: 20200811
  2. AFATINIB [Suspect]
     Active Substance: AFATINIB
     Indication: EGFR gene mutation

REACTIONS (10)
  - Malignant neoplasm progression [Unknown]
  - Ovarian cancer metastatic [Unknown]
  - Metastases to lymph nodes [Unknown]
  - Anaphylactic reaction [Unknown]
  - Drug resistance [Unknown]
  - Drug hypersensitivity [Unknown]
  - Acquired gene mutation [Unknown]
  - Nausea [Not Recovered/Not Resolved]
  - Rash [Unknown]
  - Diarrhoea [Unknown]

NARRATIVE: CASE EVENT DATE: 20190701
